FAERS Safety Report 24732898 (Version 2)
Quarter: 2025Q1

REPORT INFORMATION
  Report Type: Spontaneous
  Country: US (occurrence: None)
  Receive Date: 20241213
  Receipt Date: 20250319
  Transmission Date: 20250408
  Serious: No
  Sender: INCYTE
  Company Number: US-INCYTE CORPORATION-2024IN012834

PATIENT
  Age: 76 Year

DRUGS (1)
  1. JAKAFI [Suspect]
     Active Substance: RUXOLITINIB
     Indication: Product used for unknown indication
     Dosage: 20 MILLIGRAM, BID

REACTIONS (6)
  - Insomnia [Unknown]
  - Fall [Unknown]
  - Abdominal discomfort [Unknown]
  - Joint injury [Unknown]
  - Arthralgia [Unknown]
  - Nausea [Unknown]
